FAERS Safety Report 25178195 (Version 1)
Quarter: 2025Q2

REPORT INFORMATION
  Report Type: Spontaneous
  Country: US (occurrence: US)
  Receive Date: 20250409
  Receipt Date: 20250409
  Transmission Date: 20250717
  Serious: Yes (Other)
  Sender: GALPHARM INTERNATIONAL
  Company Number: US-PERRIGO-25US004255

PATIENT

DRUGS (1)
  1. TUSSIN SEVERE COUGH COLD FLU [Suspect]
     Active Substance: ACETAMINOPHEN\DEXTROMETHORPHAN HYDROBROMIDE\GUAIFENESIN\PHENYLEPHRINE HYDROCHLORIDE
     Indication: Product used for unknown indication
     Route: 048

REACTIONS (6)
  - Hallucination [Unknown]
  - Loss of consciousness [Unknown]
  - Fall [Unknown]
  - Clavicle fracture [Unknown]
  - Drug interaction [Unknown]
  - Dizziness [Unknown]
